FAERS Safety Report 25058715 (Version 1)
Quarter: 2025Q1

REPORT INFORMATION
  Report Type: Spontaneous
  Country: FR (occurrence: FR)
  Receive Date: 20250310
  Receipt Date: 20250310
  Transmission Date: 20250409
  Serious: Yes (Other)
  Sender: AUROBINDO
  Company Number: FR-AFSSAPS-NC2025000241

PATIENT
  Age: 57 Year
  Sex: Male

DRUGS (2)
  1. MIRTAZAPINE [Suspect]
     Active Substance: MIRTAZAPINE
     Indication: Depression
     Route: 048
     Dates: start: 202208, end: 20240822
  2. PAROXETINE [Suspect]
     Active Substance: PAROXETINE
     Indication: Depression
     Route: 048
     Dates: start: 202208, end: 20240822

REACTIONS (1)
  - Neutropenia [Recovered/Resolved]

NARRATIVE: CASE EVENT DATE: 20240822
